FAERS Safety Report 23757836 (Version 2)
Quarter: 2024Q2

REPORT INFORMATION
  Report Type: Report from Study
  Country: US (occurrence: US)
  Receive Date: 20240418
  Receipt Date: 20240524
  Transmission Date: 20240716
  Serious: Yes (Other)
  Sender: FDA-Public Use
  Company Number: US-002147023-NVSC2024US081453

PATIENT
  Sex: Female

DRUGS (1)
  1. KISQALI [Suspect]
     Active Substance: RIBOCICLIB
     Indication: Breast cancer metastatic
     Dosage: 400 MG, QD (2 WEEKS ON AND ONE WEEK OFF)
     Route: 048

REACTIONS (14)
  - Pulmonary oedema [Unknown]
  - Neoplasm malignant [Unknown]
  - Product use issue [Unknown]
  - Illness [Recovering/Resolving]
  - Discomfort [Unknown]
  - Off label use [Unknown]
  - White blood cell count decreased [Unknown]
  - Red blood cell count decreased [Unknown]
  - Malaise [Unknown]
  - Fatigue [Unknown]
  - Constipation [Unknown]
  - Alopecia [Unknown]
  - Catheter site ulcer [Unknown]
  - Nausea [Recovering/Resolving]
